FAERS Safety Report 8280057-0 (Version None)
Quarter: 2012Q2

REPORT INFORMATION
  Report Type: 
  Country: None (occurrence: None)
  Receive Date: 20120412
  Receipt Date: 20110823
  Transmission Date: 20120825
  Serious: No
  Sender: FDA-Public Use
  Company Number: US-ASTRAZENECA-2011SE50518

PATIENT
  Age: 71 Year
  Sex: Female
  Weight: 62.6 kg

DRUGS (6)
  1. B12 SHOT [Concomitant]
     Indication: GASTRIC BYPASS
  2. CYMBALTA [Concomitant]
     Indication: ANTIDEPRESSANT THERAPY
     Route: 048
     Dates: start: 20060101
  3. LEVOTHYROXINE SODIUM [Concomitant]
     Indication: THYROID DISORDER
     Route: 048
  4. ZEGERID [Concomitant]
     Route: 048
  5. FORTAO [Concomitant]
     Indication: OSTEOPOROSIS
     Dosage: DAILY FREQUENCY
     Route: 048
     Dates: start: 20100101
  6. NEXIUM [Suspect]
     Indication: GASTROOESOPHAGEAL REFLUX DISEASE
     Route: 048
     Dates: start: 20060101

REACTIONS (2)
  - OSTEOPOROSIS [None]
  - DRUG DOSE OMISSION [None]
